FAERS Safety Report 14020548 (Version 1)
Quarter: 2017Q3

REPORT INFORMATION
  Report Type: Spontaneous
  Country: US (occurrence: US)
  Receive Date: 20170928
  Receipt Date: 20170928
  Transmission Date: 20171128
  Serious: No
  Sender: FDA-Public Use
  Company Number: US-ELI_LILLY_AND_COMPANY-US201708012567

PATIENT
  Sex: Female

DRUGS (1)
  1. BASAGLAR [Suspect]
     Active Substance: INSULIN GLARGINE
     Indication: BLOOD GLUCOSE INCREASED
     Dosage: 27 U, DAILY
     Route: 065
     Dates: start: 20170730

REACTIONS (3)
  - Injury associated with device [Unknown]
  - Incorrect dose administered [Unknown]
  - Blood glucose increased [Unknown]
